FAERS Safety Report 15974661 (Version 2)
Quarter: 2019Q1

REPORT INFORMATION
  Report Type: Spontaneous
  Country: CA (occurrence: CA)
  Receive Date: 20190218
  Receipt Date: 20190306
  Transmission Date: 20190418
  Serious: Yes (Other)
  Sender: FDA-Public Use
  Company Number: CA-TEVA-2019-CA-1011366

PATIENT
  Sex: Male

DRUGS (1)
  1. FENTANYL. [Suspect]
     Active Substance: FENTANYL
     Indication: PRODUCT USED FOR UNKNOWN INDICATION
     Dosage: PATCHES
     Route: 062

REACTIONS (8)
  - Loss of personal independence in daily activities [Unknown]
  - Drug dependence [Unknown]
  - Therapy cessation [Unknown]
  - Depression [Unknown]
  - Insomnia [Unknown]
  - Panic reaction [Unknown]
  - Wrong technique in product usage process [Unknown]
  - Muscle twitching [Unknown]
